FAERS Safety Report 5717649-6 (Version None)
Quarter: 2008Q2

REPORT INFORMATION
  Report Type: 
  Country: None (occurrence: None)
  Receive Date: 20080425
  Receipt Date: 20080417
  Transmission Date: 20081010
  Serious: Yes (Other)
  Sender: FDA-Public Use
  Company Number: US-ROCHE-559573

PATIENT
  Age: 52 Year
  Sex: Female

DRUGS (1)
  1. BONIVA [Suspect]
     Indication: OSTEOPOROSIS
     Route: 065
     Dates: start: 20080327

REACTIONS (5)
  - APHAGIA [None]
  - CONSTIPATION [None]
  - INSOMNIA [None]
  - MICTURITION FREQUENCY DECREASED [None]
  - OESOPHAGEAL OEDEMA [None]
